FAERS Safety Report 4424283-7 (Version None)
Quarter: 2004Q3

REPORT INFORMATION
  Report Type: 
  Country: None (occurrence: None)
  Receive Date: 20040809
  Receipt Date: 20040726
  Transmission Date: 20050211
  Serious: Yes (Other)
  Sender: FDA-Public Use
  Company Number: 2004027040

PATIENT
  Age: 68 Year
  Sex: Female
  Weight: 64.4108 kg

DRUGS (12)
  1. NEURONTIN [Suspect]
     Indication: NEUROPATHY PERIPHERAL
     Dosage: 2400 MG (600 MG, 4 IN 1 D), ORAL
     Route: 048
     Dates: start: 20020101
  2. TERIPARATIDE (TERIPARATIDE) [Suspect]
     Indication: OSTEOPOROSIS
     Dosage: (1 IN 1 D), SUBCUTANEOUS
     Route: 058
     Dates: start: 20030501
  3. ANAESTHETICS (ANAESTHETICS) [Suspect]
     Indication: ANAESTHESIA
  4. MORPHINE [Suspect]
     Indication: ILL-DEFINED DISORDER
  5. ENALAPRIL MALEATE [Concomitant]
  6. NIFEDIPINE [Concomitant]
  7. ONE-A-DAY (ASCORBIC ACID, CYANOCOBALAMIN, ERGOCALCIFEROL, NICOTANAMIDE [Concomitant]
  8. CHLORPHENIRAMINE MALEATE [Concomitant]
  9. CALCIUM MAGNESIUM ZINC [Concomitant]
  10. RISEDRONATE SODIUM [Concomitant]
  11. AMLODIPINE BESYLATE [Concomitant]
  12. TEMAZEPAM [Concomitant]

REACTIONS (4)
  - BLOOD CALCIUM INCREASED [None]
  - DELUSION [None]
  - FEELING ABNORMAL [None]
  - HALLUCINATION, VISUAL [None]
